FAERS Safety Report 8396151-X (Version None)
Quarter: 2012Q2

REPORT INFORMATION
  Report Type: 
  Country: None (occurrence: None)
  Receive Date: 20120530
  Receipt Date: 20120522
  Transmission Date: 20120825
  Serious: Yes (Hospitalization, Congenital Anomaly)
  Sender: FDA-Public Use
  Company Number: US-GLAXOSMITHKLINE-A0979137A

PATIENT
  Sex: Male
  Weight: 3.5 kg

DRUGS (4)
  1. BRETHINE [Concomitant]
     Dates: start: 20050701
  2. TERBUTALINE [Concomitant]
     Dates: start: 20050701
  3. MACROBID [Concomitant]
     Dates: start: 20050701
  4. PAXIL [Suspect]
     Indication: DEPRESSION
     Route: 064

REACTIONS (5)
  - PULMONARY ARTERY STENOSIS [None]
  - FOETAL EXPOSURE DURING PREGNANCY [None]
  - CARDIOMEGALY [None]
  - ATRIAL SEPTAL DEFECT [None]
  - BUNDLE BRANCH BLOCK RIGHT [None]
